FAERS Safety Report 21480390 (Version 1)
Quarter: 2022Q4

REPORT INFORMATION
  Report Type: Spontaneous
  Country: US (occurrence: US)
  Receive Date: 20221019
  Receipt Date: 20221019
  Transmission Date: 20230112
  Serious: No
  Sender: FDA-Public Use
  Company Number: US-NOVARTISTESTPH-NVSC2022US235265

PATIENT
  Sex: Male

DRUGS (1)
  1. XIIDRA [Suspect]
     Active Substance: LIFITEGRAST
     Indication: Product used for unknown indication
     Dosage: 1 DRP, BID (PER EYE)
     Route: 047

REACTIONS (4)
  - Taste disorder [Unknown]
  - Vision blurred [Unknown]
  - Eye irritation [Unknown]
  - Accidental exposure to product [Unknown]
